FAERS Safety Report 25737499 (Version 1)
Quarter: 2025Q3

REPORT INFORMATION
  Report Type: Spontaneous
  Country: US (occurrence: US)
  Receive Date: 20250828
  Receipt Date: 20250828
  Transmission Date: 20251021
  Serious: Yes (Other)
  Sender: APELLIS PHARMACEUTICALS
  Company Number: US-APELLIS PHARMACEUTICALS-APL-2023-002742

PATIENT

DRUGS (1)
  1. SYFOVRE [Suspect]
     Active Substance: PEGCETACOPLAN
     Indication: Dry age-related macular degeneration
     Route: 031
     Dates: start: 20230501

REACTIONS (5)
  - Vitritis [Unknown]
  - Uveitis [Unknown]
  - Visual impairment [Unknown]
  - Vision blurred [Unknown]
  - Vitreous floaters [Unknown]
